FAERS Safety Report 7903458-6 (Version None)
Quarter: 2011Q4

REPORT INFORMATION
  Report Type: 
  Country: None (occurrence: None)
  Receive Date: 20111109
  Receipt Date: 20111101
  Transmission Date: 20120403
  Serious: Yes (Hospitalization)
  Sender: FDA-Public Use
  Company Number: US-JNJFOC-20111100427

PATIENT
  Sex: Male
  Weight: 102.06 kg

DRUGS (5)
  1. PREDNISONE [Concomitant]
     Indication: PERICARDITIS
     Route: 048
  2. ASPIRIN [Concomitant]
     Route: 048
     Dates: end: 20111001
  3. SERTRALINE HYDROCHLORIDE [Concomitant]
     Indication: ANXIETY
     Route: 048
  4. REMICADE [Suspect]
     Indication: RHEUMATOID ARTHRITIS
     Route: 042
     Dates: start: 20110601, end: 20110801
  5. CRESTOR [Concomitant]
     Indication: BLOOD CHOLESTEROL
     Route: 048

REACTIONS (8)
  - ATRIAL FIBRILLATION [None]
  - OESOPHAGEAL ULCER [None]
  - PERICARDITIS [None]
  - DYSPHAGIA [None]
  - INFUSION RELATED REACTION [None]
  - VIRAL INFECTION [None]
  - PLEURAL EFFUSION [None]
  - CARCINOID TUMOUR [None]
